FAERS Safety Report 24109700 (Version 2)
Quarter: 2025Q2

REPORT INFORMATION
  Report Type: Spontaneous
  Country: IN (occurrence: IN)
  Receive Date: 20240718
  Receipt Date: 20250528
  Transmission Date: 20250716
  Serious: Yes (Other)
  Sender: PFIZER
  Company Number: IN-PFIZER INC-2021902973

PATIENT
  Age: 70 Year
  Sex: Female

DRUGS (6)
  1. DACOMITINIB [Suspect]
     Active Substance: DACOMITINIB
     Indication: Lung adenocarcinoma
     Dosage: 30 MG, 1X/DAY
     Route: 048
     Dates: start: 20210716
  2. DACOMITINIB [Suspect]
     Active Substance: DACOMITINIB
     Dosage: TAKEN THE HALF TABLET
     Dates: start: 20221006, end: 20221007
  3. DACOMITINIB [Suspect]
     Active Substance: DACOMITINIB
     Dosage: X 4 MONTHS
     Route: 048
  4. DACOMITINIB [Suspect]
     Active Substance: DACOMITINIB
     Route: 048
     Dates: end: 20240724
  5. DOXY [DOXYCYCLINE] [Concomitant]
     Dosage: 100 MG, 2X/DAY FOR 7 DAYS
     Route: 048
  6. CIPROFLOXACIN [Concomitant]
     Active Substance: CIPROFLOXACIN
     Dosage: 2-2-2 X 3 DAYS

REACTIONS (6)
  - Brain operation [Unknown]
  - Lung adenocarcinoma [Unknown]
  - Malignant neoplasm progression [Unknown]
  - Rash [Unknown]
  - Pain [Unknown]
  - Intentional product use issue [Unknown]
